FAERS Safety Report 15051401 (Version 8)
Quarter: 2022Q3

REPORT INFORMATION
  Report Type: Spontaneous
  Country: JP (occurrence: JP)
  Receive Date: 20180622
  Receipt Date: 20220728
  Transmission Date: 20221027
  Serious: Yes (Hospitalization, Other)
  Sender: FDA-Public Use
  Company Number: JP-SANOFI-2017SA097302

PATIENT
  Age: 1 Year
  Sex: Female
  Weight: 8.54 kg

DRUGS (15)
  1. SABRIL [Suspect]
     Active Substance: VIGABATRIN
     Indication: Infantile spasms
     Dosage: BID (55 MG/KG/DAY, 500 MG/DAY)
     Route: 048
     Dates: start: 20170705, end: 20180705
  2. SABRIL [Suspect]
     Active Substance: VIGABATRIN
     Indication: Epileptic encephalopathy
     Dosage: 150 MG, BID
     Route: 048
     Dates: start: 20170405, end: 20170508
  3. SABRIL [Suspect]
     Active Substance: VIGABATRIN
     Dosage: 175 MG, BID
     Route: 048
     Dates: start: 20170509, end: 20170605
  4. SABRIL [Suspect]
     Active Substance: VIGABATRIN
     Dosage: 225 MG, BID
     Route: 048
     Dates: start: 20170606, end: 20170704
  5. SABRIL [Suspect]
     Active Substance: VIGABATRIN
     Dosage: BID (70 MG/KG/DAY, 700 MG/DAY)
     Route: 048
     Dates: start: 20180706, end: 20190416
  6. SABRIL [Suspect]
     Active Substance: VIGABATRIN
     Dosage: BID (55 MG/KG/DAY, 600 MG/DAY)
     Route: 048
     Dates: start: 20190417, end: 20200319
  7. VALPROATE SODIUM [Concomitant]
     Active Substance: VALPROATE SODIUM
     Indication: Epileptic encephalopathy
     Dosage: DAILY DOSE: 180 MG
     Route: 048
     Dates: start: 20160714, end: 20180617
  8. VALPROATE SODIUM [Concomitant]
     Active Substance: VALPROATE SODIUM
     Indication: Infantile spasms
     Dosage: DAILY DOSE: 250 MG
     Route: 048
     Dates: start: 20190807
  9. ZONISAMIDE [Concomitant]
     Active Substance: ZONISAMIDE
     Indication: Epileptic encephalopathy
     Dosage: DAILY DOSE: 110 MG
     Route: 048
     Dates: start: 20161210, end: 20180617
  10. ZONISAMIDE [Concomitant]
     Active Substance: ZONISAMIDE
     Indication: Infantile spasms
     Dosage: DAILY DOSE: 120 MG
     Route: 048
     Dates: start: 20181222
  11. LEVETIRACETAM [Concomitant]
     Active Substance: LEVETIRACETAM
     Indication: Epileptic encephalopathy
     Dosage: DAILY DOSE: 500 MG
     Route: 048
     Dates: start: 20160705, end: 20180617
  12. LEVETIRACETAM [Concomitant]
     Active Substance: LEVETIRACETAM
     Indication: Infantile spasms
     Dosage: DAILY DOSE: 700 MG
     Route: 048
     Dates: start: 20190807
  13. LEVETIRACETAM [Concomitant]
     Active Substance: LEVETIRACETAM
     Dosage: DOSE INCREASED
     Route: 048
     Dates: start: 20190818
  14. PHENOBARBITAL [Concomitant]
     Active Substance: PHENOBARBITAL
     Indication: Infantile spasms
     Dosage: 50 MG/DAY
     Route: 048
     Dates: start: 20160623
  15. PHENOBARBITAL [Concomitant]
     Active Substance: PHENOBARBITAL
     Indication: Epileptic encephalopathy

REACTIONS (3)
  - Optic atrophy [Unknown]
  - Influenza [Recovered/Resolved]
  - Therapeutic product effect incomplete [Unknown]

NARRATIVE: CASE EVENT DATE: 20170519
